FAERS Safety Report 25124345 (Version 1)
Quarter: 2025Q1

REPORT INFORMATION
  Report Type: Spontaneous
  Country: US (occurrence: None)
  Receive Date: 20250325
  Receipt Date: 20250325
  Transmission Date: 20250409
  Serious: Yes (Life-Threatening, Hospitalization)
  Sender: FDA-CTU
  Company Number: None

PATIENT
  Age: 54 Year
  Sex: Male
  Weight: 86 kg

DRUGS (2)
  1. CEFTRIAXONE [Suspect]
     Active Substance: CEFTRIAXONE
     Indication: Urinary tract infection
     Route: 042
     Dates: start: 20250124, end: 20250124
  2. LISINOPRIL [Suspect]
     Active Substance: LISINOPRIL
     Dates: start: 20101008, end: 20250124

REACTIONS (2)
  - Angioedema [None]
  - Urinary tract infection [None]

NARRATIVE: CASE EVENT DATE: 20250124
